FAERS Safety Report 17902668 (Version 2)
Quarter: 2020Q3

REPORT INFORMATION
  Report Type: Report from Study
  Country: PH (occurrence: PH)
  Receive Date: 20200616
  Receipt Date: 20200710
  Transmission Date: 20201103
  Serious: Yes (Death)
  Sender: FDA-Public Use
  Company Number: PH-ASTRAZENECA-2020SE75539

PATIENT
  Age: 68 Year
  Sex: Female
  Weight: 51 kg

DRUGS (5)
  1. AMLODIPINE [Concomitant]
     Active Substance: AMLODIPINE BESYLATE
     Indication: HYPERTENSION
     Route: 048
  2. ERLOTINIB [Concomitant]
     Active Substance: ERLOTINIB
     Dosage: 150.0MG UNKNOWN
  3. GEFITINIB. [Concomitant]
     Active Substance: GEFITINIB
     Dosage: 250.0MG UNKNOWN
  4. TAGRISSO [Suspect]
     Active Substance: OSIMERTINIB
     Indication: LUNG CARCINOMA CELL TYPE UNSPECIFIED STAGE IV
     Dosage: 80.0MG UNKNOWN
     Route: 048
     Dates: start: 20200608, end: 20200610
  5. MORPHINE [Concomitant]
     Active Substance: MORPHINE
     Indication: ANALGESIC THERAPY
     Dosage: EVERY HOUR
     Dates: start: 20200607, end: 20200608

REACTIONS (3)
  - Death [Fatal]
  - Hypersomnia [Unknown]
  - Somnolence [Unknown]

NARRATIVE: CASE EVENT DATE: 20200610
